FAERS Safety Report 10247786 (Version 3)
Quarter: 2014Q3

REPORT INFORMATION
  Report Type: Spontaneous
  Country: JP (occurrence: JP)
  Receive Date: 20140619
  Receipt Date: 20140819
  Transmission Date: 20150326
  Serious: Yes (Death, Other)
  Sender: FDA-Public Use
  Company Number: PHHY2014JP072736

PATIENT
  Age: 76 Year
  Sex: Male

DRUGS (13)
  1. DERMOVATE [Suspect]
     Active Substance: CLOBETASOL
     Dosage: UNK UKN, UNK
  2. SEIBULE [Suspect]
     Active Substance: MIGLITOL
     Dosage: UNK UKN, UNK
     Route: 048
  3. FUCIDIN LEO [Suspect]
     Active Substance: FUSIDATE SODIUM
     Dosage: UNK UKN, UNK
  4. CILNIDIPINE [Suspect]
     Active Substance: CILNIDIPINE
     Dosage: UNK UKN, UNK
     Route: 048
  5. HUMALOG [Suspect]
     Active Substance: INSULIN LISPRO
     Dosage: UNK UKN, UNK
  6. CEFDITOREN PIVOXIL. [Suspect]
     Active Substance: CEFDITOREN PIVOXIL
     Dosage: UNK UKN, UNK
     Route: 048
  7. ATORVASTATIN [Suspect]
     Active Substance: ATORVASTATIN
     Dosage: UNK UKN, UNK
     Route: 048
  8. METGLUCO [Suspect]
     Active Substance: METFORMIN HYDROCHLORIDE
     Dosage: UNK UKN, UNK
     Route: 048
  9. INSULIN DEGLUDEC [Suspect]
     Active Substance: INSULIN DEGLUDEC
     Dosage: UNK UKN, UNK
  10. IRBETAN [Suspect]
     Active Substance: IRBESARTAN
     Dosage: UNK UKN, UNK
     Route: 048
  11. LAC-B [Suspect]
     Active Substance: BIFIDOBACTERIUM SPP.
     Dosage: UNK UKN, UNK
     Route: 048
  12. BIOFERMIN [Suspect]
     Active Substance: BACILLUS SUBTILIS\LACTOBACILLUS ACIDOPHILUS\STREPTOCOCCUS FAECAIS
     Dosage: UNK UKN, UNK
     Route: 048
  13. LUCENTIS [Suspect]
     Active Substance: RANIBIZUMAB
     Indication: DIABETIC RETINAL OEDEMA
     Dosage: 0.05 ML, UNK
     Route: 031
     Dates: start: 20140520

REACTIONS (4)
  - Cerebral haemorrhage [Fatal]
  - Paralysis [Fatal]
  - Haematoma [Unknown]
  - Respiratory rate decreased [Unknown]

NARRATIVE: CASE EVENT DATE: 20140601
